FAERS Safety Report 26026075 (Version 2)
Quarter: 2025Q4

REPORT INFORMATION
  Report Type: Spontaneous
  Country: US (occurrence: US)
  Receive Date: 20251111
  Receipt Date: 20251118
  Transmission Date: 20260118
  Serious: No
  Sender: PFIZER
  Company Number: US-PFIZER INC-202500218686

PATIENT

DRUGS (1)
  1. FENTANYL CITRATE [Suspect]
     Active Substance: FENTANYL CITRATE
     Dosage: 400 UG, SINGLE VIA PEG TUBE

REACTIONS (3)
  - Incorrect disposal of product [Recovering/Resolving]
  - Discontinued product administered [Recovering/Resolving]
  - Blood pressure decreased [Recovering/Resolving]
